FAERS Safety Report 6769629-X (Version None)
Quarter: 2010Q2

REPORT INFORMATION
  Report Type: 
  Country: None (occurrence: None)
  Receive Date: 20100608
  Receipt Date: 20100601
  Transmission Date: 20101027
  Serious: Yes (Other)
  Sender: FDA-Public Use
  Company Number: 2010SP030871

PATIENT
  Age: 51 Year
  Sex: Female

DRUGS (2)
  1. MIRTAZAPINE [Suspect]
     Indication: SLEEP DISORDER
     Dosage: 15 MG; PO
     Route: 048
  2. FLUNITRAZEPAM [Concomitant]

REACTIONS (2)
  - HEPATIC STEATOSIS [None]
  - WEIGHT INCREASED [None]
